FAERS Safety Report 6189518-1 (Version None)
Quarter: 2009Q2

REPORT INFORMATION
  Report Type: 
  Country: None (occurrence: None)
  Receive Date: 20090512
  Receipt Date: 20090512
  Transmission Date: 20091009
  Serious: No
  Sender: FDA-Public Use
  Company Number: None

PATIENT
  Age: 62 Year
  Sex: Female
  Weight: 54.4316 kg

DRUGS (1)
  1. EVISTA [Suspect]
     Indication: OSTEOPOROTIC FRACTURE
     Dosage: ONE TABLET DAILY PO
     Route: 048

REACTIONS (2)
  - MUSCLE SPASMS [None]
  - TEARFULNESS [None]
